FAERS Safety Report 8222416-8 (Version None)
Quarter: 2012Q1

REPORT INFORMATION
  Report Type: 
  Country: None (occurrence: None)
  Receive Date: 20120312
  Receipt Date: 20120223
  Transmission Date: 20120608
  Serious: Yes (Hospitalization)
  Sender: FDA-Public Use
  Company Number: DSA_55229_2012

PATIENT
  Age: 90 Year
  Sex: Female

DRUGS (5)
  1. LASIX [Suspect]
     Indication: CARDIAC FAILURE CHRONIC
     Dosage: (50 MG QD ORAL)
     Route: 048
     Dates: start: 20110101
  2. ENALAPRIL MALEATE [Suspect]
     Indication: HYPERTENSION
     Dosage: (5 MG QD ORAL)
     Route: 048
     Dates: start: 20110101
  3. ASPIRIN [Concomitant]
  4. ATENOLOL [Suspect]
     Indication: HYPERTENSION
     Dosage: (100 MG QD ORAL)
     Route: 048
     Dates: start: 20110101, end: 20120123
  5. LANOXIN [Suspect]
     Indication: CARDIAC FAILURE CHRONIC
     Dosage: (0.125 MG QD ORAL)
     Route: 048
     Dates: start: 20110101, end: 20120123

REACTIONS (2)
  - BRADYCARDIA [None]
  - DRUG INTERACTION [None]
